FAERS Safety Report 8975279 (Version 3)
Quarter: 2013Q2

REPORT INFORMATION
  Report Type: Spontaneous
  Country: HU (occurrence: HU)
  Receive Date: 20121219
  Receipt Date: 20130415
  Transmission Date: 20140414
  Serious: Yes (Hospitalization)
  Sender: FDA-Public Use
  Company Number: HU-PFIZER INC-2012316932

PATIENT
  Age: 27 Year
  Sex: Male

DRUGS (1)
  1. MEDROL [Suspect]
     Indication: NEPHROTIC SYNDROME
     Dosage: 16 MG, 3X/DAY

REACTIONS (3)
  - Tablet physical issue [Recovered/Resolved]
  - Hypersensitivity [Recovered/Resolved]
  - Flushing [Recovered/Resolved]
